FAERS Safety Report 17239918 (Version 2)
Quarter: 2020Q1

REPORT INFORMATION
  Report Type: Spontaneous
  Country: US (occurrence: US)
  Receive Date: 20200106
  Receipt Date: 20200123
  Transmission Date: 20200409
  Serious: Yes (Other)
  Sender: FDA-Public Use
  Company Number: US-LUPIN PHARMACEUTICALS INC.-2019-08864

PATIENT
  Age: 3 Year
  Sex: Female

DRUGS (4)
  1. VITAMIN D3 [Suspect]
     Active Substance: CHOLECALCIFEROL
     Indication: SUPPLEMENTATION THERAPY
     Dosage: 1000 INTERNATIONAL UNIT, QD
     Route: 065
  2. PHOSPHORUS [Concomitant]
     Active Substance: PHOSPHORUS
     Indication: SUPPLEMENTATION THERAPY
     Dosage: UNK
     Route: 065
  3. ELEMENTAL F [Concomitant]
     Indication: SUPPLEMENTATION THERAPY
     Dosage: UNK
     Route: 065
  4. CALCIUM [Suspect]
     Active Substance: CALCIUM
     Indication: SUPPLEMENTATION THERAPY
     Dosage: UNK
     Route: 065

REACTIONS (2)
  - Bone metabolism disorder [Unknown]
  - Vitamin D increased [Recovered/Resolved]
